FAERS Safety Report 18371556 (Version 1)
Quarter: 2020Q4

REPORT INFORMATION
  Report Type: Spontaneous
  Country: FR (occurrence: FR)
  Receive Date: 20201012
  Receipt Date: 20201012
  Transmission Date: 20210114
  Serious: Yes (Hospitalization, Other)
  Sender: FDA-Public Use
  Company Number: FR-MYLANLABS-2020M1085949

PATIENT
  Age: 79 Year
  Sex: Male
  Weight: 69 kg

DRUGS (3)
  1. TARDYFERON [Suspect]
     Active Substance: FERROUS SULFATE
     Indication: ANAEMIA
     Dosage: 80 MILLIGRAM, QD
     Route: 048
     Dates: start: 20200805, end: 20200811
  2. ARIXTRA [Suspect]
     Active Substance: FONDAPARINUX SODIUM
     Indication: THROMBOSIS PROPHYLAXIS
     Dosage: 2.5 MILLIGRAM, QD
     Route: 058
     Dates: start: 20200804, end: 20200817
  3. PARACETAMOL [Concomitant]
     Active Substance: ACETAMINOPHEN
     Dosage: UNK

REACTIONS (1)
  - Dermatitis bullous [Recovered/Resolved with Sequelae]

NARRATIVE: CASE EVENT DATE: 20200808
